FAERS Safety Report 6054494-9 (Version None)
Quarter: 2009Q1

REPORT INFORMATION
  Report Type: 
  Country: None (occurrence: None)
  Receive Date: 20090127
  Receipt Date: 20061016
  Transmission Date: 20090719
  Serious: Yes (Death, Other)
  Sender: FDA-Public Use
  Company Number: PHHO2006IL15777

PATIENT
  Sex: Male
  Weight: 83 kg

DRUGS (2)
  1. STI571/CGP57148B T35717+CAPS [Suspect]
     Indication: DESMOID TUMOUR
     Dosage: 400 MG, QD
     Route: 048
     Dates: start: 20030731
  2. PROLEUKIN [Suspect]
     Indication: MALIGNANT MELANOMA
     Dates: start: 20060101

REACTIONS (8)
  - ACUTE RESPIRATORY FAILURE [None]
  - ADVERSE DRUG REACTION [None]
  - ANURIA [None]
  - MECHANICAL VENTILATION [None]
  - METASTASES TO LIVER [None]
  - METASTASES TO LUNG [None]
  - METASTATIC MALIGNANT MELANOMA [None]
  - RENAL FAILURE ACUTE [None]
